FAERS Safety Report 24242003 (Version 1)
Quarter: 2024Q3

REPORT INFORMATION
  Report Type: Spontaneous
  Country: CA (occurrence: CA)
  Receive Date: 20240823
  Receipt Date: 20240823
  Transmission Date: 20241016
  Serious: Yes (Death)
  Sender: JOHNSON AND JOHNSON
  Company Number: CA-JNJFOC-20240859530

PATIENT

DRUGS (3)
  1. IBUPROFEN [Suspect]
     Active Substance: IBUPROFEN
     Indication: Patent ductus arteriosus
     Dosage: ENTERAL, 10 MG/KG FOLLOWED BY TWO DOSES OF 5 MG/KG EVERY 24 HOURS
     Route: 065
  2. IBUPROFEN [Suspect]
     Active Substance: IBUPROFEN
     Dosage: ENTERAL, 10 MG/KG FOLLOWED BY TWO DOSES OF 5 MG/KG EVERY 24 HOURS
     Route: 065
  3. ACETAMINOPHEN [Suspect]
     Active Substance: ACETAMINOPHEN
     Indication: Patent ductus arteriosus
     Dosage: ENTERAL, FOR 3-7 DAYS
     Route: 065

REACTIONS (2)
  - Off label use [Fatal]
  - Adverse event [Fatal]
